FAERS Safety Report 7093617-X (Version None)
Quarter: 2010Q4

REPORT INFORMATION
  Report Type: 
  Country: None (occurrence: None)
  Receive Date: 20101110
  Receipt Date: 20091015
  Transmission Date: 20110411
  Serious: No
  Sender: FDA-Public Use
  Company Number: US-KINGPHARMUSA00001-K200901280

PATIENT
  Sex: Female

DRUGS (6)
  1. FLECTOR [Suspect]
     Indication: BACK PAIN
     Dosage: UNK PATCH, UNK
     Route: 061
     Dates: start: 20091012
  2. NORTRIPTYLINE [Concomitant]
     Dosage: UNK
  3. TRAMADOL HCL [Concomitant]
     Dosage: UNK
  4. PREDNISONE [Concomitant]
     Dosage: UNK
  5. AVALIDE [Concomitant]
     Indication: BLOOD PRESSURE
     Dosage: UNK
  6. CLONIDINE [Concomitant]
     Dosage: UNK

REACTIONS (1)
  - ECCHYMOSIS [None]
